FAERS Safety Report 8586443 (Version 2)
Quarter: 2012Q4

REPORT INFORMATION
  Report Type: Report from Study
  Country: JP (occurrence: JP)
  Receive Date: 20120530
  Receipt Date: 20120925
  Transmission Date: 20130627
  Serious: Yes (Other)
  Sender: FDA-Public Use
  Company Number: JP-ROCHE-1072857

PATIENT
  Age: 64 Year
  Sex: Male

DRUGS (3)
  1. RANIBIZUMAB [Suspect]
     Indication: AGE-RELATED MACULAR DEGENERATION
     Route: 050
     Dates: start: 20101018
  2. VISUDYNE [Concomitant]
     Route: 065
     Dates: start: 20060614, end: 20060614
  3. VIGAMOX [Concomitant]
     Route: 065
     Dates: start: 201010, end: 201010

REACTIONS (1)
  - Urticaria [Recovered/Resolved]
